FAERS Safety Report 8262798 (Version 9)
Quarter: 2014Q2

REPORT INFORMATION
  Report Type: Spontaneous
  Country: US (occurrence: US)
  Receive Date: 20111124
  Receipt Date: 20140501
  Transmission Date: 20141212
  Serious: Yes (Hospitalization, Other)
  Sender: FDA-Public Use
  Company Number: US-ROCHE-1015931

PATIENT
  Age: 43 Year
  Sex: Female
  Weight: 75.82 kg

DRUGS (1)
  1. ACCUTANE [Suspect]
     Indication: ACNE
     Route: 065
     Dates: start: 200202, end: 200207

REACTIONS (10)
  - Colitis ulcerative [Unknown]
  - Pyoderma gangrenosum [Recovered/Resolved]
  - Female genital tract fistula [Unknown]
  - Inflammatory bowel disease [Unknown]
  - Injury [Unknown]
  - Depression [Unknown]
  - Cervicitis [Unknown]
  - Headache [Unknown]
  - Pruritus [Unknown]
  - Blood cholesterol increased [Unknown]
